FAERS Safety Report 6439847-9 (Version None)
Quarter: 2009Q4

REPORT INFORMATION
  Report Type: 
  Country: None (occurrence: None)
  Receive Date: 20091112
  Receipt Date: 20091112
  Transmission Date: 20100525
  Serious: Yes (Other)
  Sender: FDA-Public Use
  Company Number: None

PATIENT
  Age: 49 Year
  Sex: Female
  Weight: 63.5036 kg

DRUGS (3)
  1. PROMETRIUM [Suspect]
     Indication: HYPERPLASIA
     Dosage: 200 MG 1DAILY 12DAYS
     Dates: start: 20090901, end: 20090901
  2. PROMETRIUM [Suspect]
     Indication: HYPERPLASIA
     Dosage: 200 MG 1DAILY 12DAYS
     Dates: start: 20091001, end: 20091012
  3. PROMETRIUM [Suspect]
     Indication: HYPERPLASIA
     Dosage: 200 MG 1DAILY 12DAYS
     Dates: start: 20091101, end: 20091112

REACTIONS (4)
  - ABASIA [None]
  - APHASIA [None]
  - EYE ROLLING [None]
  - HYPOTENSION [None]
